FAERS Safety Report 4836817-9 (Version None)
Quarter: 2005Q4

REPORT INFORMATION
  Report Type: 
  Country: None (occurrence: None)
  Receive Date: 20051123
  Receipt Date: 20051121
  Transmission Date: 20060501
  Serious: Yes (Other)
  Sender: FDA-Public Use
  Company Number: US-MERCK-0511USA03460

PATIENT
  Age: 84 Year
  Sex: Female

DRUGS (2)
  1. PRINIVIL [Suspect]
     Indication: HYPERTENSION
     Route: 048
  2. PROCARDIA [Suspect]
     Indication: HYPERTENSION
     Route: 065

REACTIONS (1)
  - DRUG INEFFECTIVE [None]
